FAERS Safety Report 4312420-4 (Version None)
Quarter: 2004Q1

REPORT INFORMATION
  Report Type: 
  Country: None (occurrence: None)
  Receive Date: 20040304
  Receipt Date: 20040304
  Transmission Date: 20041129
  Serious: Yes (Hospitalization)
  Sender: FDA-Public Use
  Company Number: None

PATIENT
  Age: 66 Year
  Sex: Male
  Weight: 57.6 kg

DRUGS (3)
  1. MAXZIDE [Suspect]
     Indication: HYPERTENSION
     Dosage: 25/37.5 DAILY ORAL
     Route: 048
     Dates: start: 20031112, end: 20031212
  2. ATENOLOL [Concomitant]
  3. IRBESARTAN [Concomitant]

REACTIONS (1)
  - HYPONATRAEMIA [None]
